FAERS Safety Report 22291721 (Version 1)
Quarter: 2023Q2

REPORT INFORMATION
  Report Type: Spontaneous
  Country: US (occurrence: None)
  Receive Date: 20230505
  Receipt Date: 20230505
  Transmission Date: 20230721
  Serious: Yes (Other)
  Sender: FDA-Public Use
  Company Number: None

PATIENT
  Age: 33 Year
  Sex: Female
  Weight: 82.8 kg

DRUGS (2)
  1. REMICADE [Suspect]
     Active Substance: INFLIXIMAB
     Indication: Ankylosing spondylitis
     Dates: start: 20221011, end: 20221220
  2. ADDERALL [Concomitant]
     Active Substance: AMPHETAMINE ASPARTATE\AMPHETAMINE SULFATE\DEXTROAMPHETAMINE SACCHARATE\DEXTROAMPHETAMINE SULFATE

REACTIONS (9)
  - Rash [None]
  - Psoriasis [None]
  - Psoriasis [None]
  - Alopecia [None]
  - Immune system disorder [None]
  - Ear infection [None]
  - Subcutaneous abscess [None]
  - Hidradenitis [None]
  - Self esteem decreased [None]

NARRATIVE: CASE EVENT DATE: 20221210
